FAERS Safety Report 9787462 (Version 4)
Quarter: 2014Q2

REPORT INFORMATION
  Report Type: Spontaneous
  Country: US (occurrence: US)
  Receive Date: 20131230
  Receipt Date: 20140526
  Transmission Date: 20141212
  Serious: Yes (Life-Threatening, Hospitalization)
  Sender: FDA-Public Use
  Company Number: US-BEH-2012033689

PATIENT
  Age: 58 Year
  Sex: Male
  Weight: 75 kg

DRUGS (7)
  1. ZEMAIRA [Suspect]
     Indication: ALPHA-1 ANTI-TRYPSIN DEFICIENCY
     Dosage: BEGINNING MAY-2012
     Route: 042
  2. ADVAIR [Concomitant]
  3. XANAX [Concomitant]
  4. PREDNISONE [Concomitant]
  5. METFORMIN [Concomitant]
  6. IPRATROPIUM [Concomitant]
  7. ALBUTEROL [Concomitant]

REACTIONS (13)
  - Myocardial infarction [Recovered/Resolved]
  - Myocardial infarction [Unknown]
  - Coronary artery restenosis [Not Recovered/Not Resolved]
  - Stent placement [Not Recovered/Not Resolved]
  - Stent placement [Recovered/Resolved]
  - Chest pain [Not Recovered/Not Resolved]
  - Chest pain [Recovered/Resolved]
  - Chest pain [Unknown]
  - Nasopharyngitis [Recovered/Resolved]
  - Osteoporosis [Not Recovered/Not Resolved]
  - Bone pain [Not Recovered/Not Resolved]
  - Arthralgia [Not Recovered/Not Resolved]
  - Dyspnoea [Unknown]
